FAERS Safety Report 4660669-3 (Version None)
Quarter: 2005Q2

REPORT INFORMATION
  Report Type: 
  Country: None (occurrence: None)
  Receive Date: 20050512
  Receipt Date: 20050504
  Transmission Date: 20051028
  Serious: Yes (Hospitalization)
  Sender: FDA-Public Use
  Company Number: US-ABBOTT-05P-163-0299766-00

PATIENT
  Age: 45 Year
  Sex: Female

DRUGS (1)
  1. SYNTHROID [Suspect]
     Indication: HYPOTHYROIDISM
     Route: 048
     Dates: start: 20050401, end: 20050401

REACTIONS (3)
  - BLOOD HOMOCYSTEINE INCREASED [None]
  - CAVERNOUS SINUS THROMBOSIS [None]
  - SUBARACHNOID HAEMORRHAGE [None]
